FAERS Safety Report 25079790 (Version 1)
Quarter: 2025Q1

REPORT INFORMATION
  Report Type: Spontaneous
  Country: AT (occurrence: AT)
  Receive Date: 20250314
  Receipt Date: 20250314
  Transmission Date: 20250408
  Serious: Yes (Other)
  Sender: BAYER HEALTHCARE PHARMACEUTICALS INC.
  Company Number: AT-BAYER-2025A033457

PATIENT
  Sex: Male

DRUGS (1)
  1. NUBEQA [Suspect]
     Active Substance: DAROLUTAMIDE
     Route: 048

REACTIONS (5)
  - Metastases to lymph nodes [Unknown]
  - Pharyngeal haemorrhage [Unknown]
  - Ear haemorrhage [Unknown]
  - Epistaxis [Unknown]
  - General physical health deterioration [Unknown]
